FAERS Safety Report 21349860 (Version 1)
Quarter: 2022Q3

REPORT INFORMATION
  Report Type: Spontaneous
  Country: US (occurrence: US)
  Receive Date: 20220919
  Receipt Date: 20220919
  Transmission Date: 20221026
  Serious: Yes (Hospitalization, Disabling, Other)
  Sender: FDA-Public Use
  Company Number: US-ORGANON-1307USA000226

PATIENT
  Sex: Female

DRUGS (2)
  1. FOSAMAX [Suspect]
     Active Substance: ALENDRONATE SODIUM
     Indication: Osteoporosis
     Dosage: 70 MG, QW
     Route: 048
     Dates: start: 1997, end: 2007
  2. RECLAST [Suspect]
     Active Substance: ZOLEDRONIC ACID
     Dosage: ONCE A YEAR
     Dates: start: 2007

REACTIONS (11)
  - Femur fracture [Not Recovered/Not Resolved]
  - Femur fracture [Not Recovered/Not Resolved]
  - Osteonecrosis of jaw [Not Recovered/Not Resolved]
  - Fall [Unknown]
  - Fall [Unknown]
  - Neck pain [Not Recovered/Not Resolved]
  - Tooth loss [Not Recovered/Not Resolved]
  - Pain [Not Recovered/Not Resolved]
  - Muscular weakness [Not Recovered/Not Resolved]
  - Pain in extremity [Not Recovered/Not Resolved]
  - Back pain [Not Recovered/Not Resolved]

NARRATIVE: CASE EVENT DATE: 20020101
